FAERS Safety Report 15806687 (Version 1)
Quarter: 2019Q1

REPORT INFORMATION
  Report Type: Spontaneous
  Country: US (occurrence: US)
  Receive Date: 20190103
  Receipt Date: 20190103
  Transmission Date: 20190417
  Serious: No
  Sender: FDA-Public Use
  Company Number: None

PATIENT

DRUGS (2)
  1. MORPHINE MORPHINE [Suspect]
     Active Substance: MORPHINE
  2. SYRINGE PRE-FILLED SYRINGE [Suspect]
     Active Substance: DEVICE

REACTIONS (2)
  - Device difficult to use [None]
  - Product label confusion [None]
